FAERS Safety Report 6621015-9 (Version None)
Quarter: 2010Q1

REPORT INFORMATION
  Report Type: 
  Country: None (occurrence: None)
  Receive Date: 20100309
  Receipt Date: 20100304
  Transmission Date: 20100710
  Serious: Yes (Death, Hospitalization, Other)
  Sender: FDA-Public Use
  Company Number: PHEH2007US13902

PATIENT
  Sex: Female
  Weight: 60.771 kg

DRUGS (32)
  1. AREDIA [Suspect]
     Indication: BREAST CANCER
     Dosage: 90 MG, UNK
     Dates: start: 20000101
  2. ZOMETA [Suspect]
     Indication: BREAST CANCER
     Dosage: UNK
  3. OXYCONTIN [Concomitant]
     Indication: BREAKTHROUGH PAIN
     Dosage: 20 MG IN THE MORNING, 40 MG IN THE EVENING
     Route: 048
  4. SYNTHROID [Concomitant]
     Dosage: .15 MG, QD
     Route: 048
  5. FARESTON ^LAAKEFARMOS^ [Concomitant]
     Dosage: UNK
     Route: 048
  6. RESTORIL [Concomitant]
     Route: 048
  7. TYLENOL (CAPLET) [Concomitant]
     Route: 048
  8. PERCOCET [Concomitant]
     Indication: BREAKTHROUGH PAIN
     Route: 048
  9. LASIX [Concomitant]
     Dosage: 40 MG, QD
  10. CARISOPRODOL [Concomitant]
  11. EFFEXOR [Concomitant]
     Dosage: 37.5 MG, QD
  12. AROMASIN [Concomitant]
     Indication: HORMONE REPLACEMENT THERAPY
  13. HERCEPTIN [Concomitant]
     Dosage: UNK
  14. REMERON [Concomitant]
     Dosage: UNK
     Dates: end: 20070621
  15. HORMONES [Concomitant]
  16. TAXOL [Concomitant]
     Dosage: 78 MG, UNK
  17. HERCEPTIN [Concomitant]
     Dosage: 124 MG, UNK
  18. AROMASIN [Concomitant]
  19. ARIMIDEX [Concomitant]
     Dosage: 1 MG, DAILY
     Route: 048
     Dates: start: 20000326
  20. TAXOTERE [Concomitant]
  21. XELODA [Concomitant]
  22. RADIATION [Concomitant]
     Dosage: UNK
     Dates: start: 20010101
  23. RADIATION [Concomitant]
     Dosage: UNK
     Dates: start: 20000327, end: 20000508
  24. TEQUIN [Concomitant]
  25. TAMOXIFEN CITRATE [Concomitant]
     Dosage: UNK
     Dates: start: 19991001, end: 20000326
  26. SAMARIUM [153 SM] LEXIDRONAM PENTASODIUM [Concomitant]
     Dosage: UNK
     Dates: start: 20000426
  27. NORTRIPTYLINE HCL [Concomitant]
  28. OXYCODONE HCL AND ACETAMINOPHEN [Concomitant]
  29. GABAPENTIN [Concomitant]
  30. CYCLOBENZAPRINE [Concomitant]
  31. WARFARIN SODIUM [Concomitant]
  32. NASAREL [Concomitant]

REACTIONS (66)
  - ABDOMINAL DISCOMFORT [None]
  - ABDOMINAL PAIN [None]
  - AGITATION [None]
  - ANGER [None]
  - ANHEDONIA [None]
  - ANXIETY [None]
  - ARTERIOSCLEROSIS [None]
  - ASTHENIA [None]
  - ATELECTASIS [None]
  - BACK PAIN [None]
  - BONE DISORDER [None]
  - BONE PAIN [None]
  - CENTRAL VENOUS CATHETERISATION [None]
  - CHOLECYSTECTOMY [None]
  - CHOLECYSTITIS [None]
  - CHOLELITHIASIS [None]
  - CONFUSIONAL STATE [None]
  - CONNECTIVE TISSUE DISORDER [None]
  - CONSTIPATION [None]
  - CONTUSION [None]
  - COUGH [None]
  - DEATH [None]
  - DECREASED APPETITE [None]
  - DEFORMITY [None]
  - DEPRESSIVE SYMPTOM [None]
  - DISCOMFORT [None]
  - DRUG INTOLERANCE [None]
  - DYSGEUSIA [None]
  - DYSPHAGIA [None]
  - DYSPNOEA [None]
  - EMOTIONAL DISTRESS [None]
  - FALL [None]
  - FATIGUE [None]
  - GAIT DISTURBANCE [None]
  - GASTROOESOPHAGEAL REFLUX DISEASE [None]
  - HAEMATEMESIS [None]
  - HAEMATOCHEZIA [None]
  - HEPATIC STEATOSIS [None]
  - HERPES ZOSTER [None]
  - HIATUS HERNIA [None]
  - HYPOAESTHESIA [None]
  - HYPOKALAEMIA [None]
  - HYPOPHAGIA [None]
  - INTERVERTEBRAL DISC DEGENERATION [None]
  - IRON DEFICIENCY ANAEMIA [None]
  - LIFE EXPECTANCY SHORTENED [None]
  - LUNG NEOPLASM [None]
  - MENTAL DISORDER [None]
  - METASTASES TO BONE [None]
  - METASTASES TO LIVER [None]
  - OROPHARYNGEAL PAIN [None]
  - OSTEONECROSIS [None]
  - OSTEOPOROSIS [None]
  - PAIN [None]
  - PAIN IN JAW [None]
  - PANCREATITIS ACUTE [None]
  - PARANOIA [None]
  - PLEURAL EFFUSION [None]
  - PRURITUS [None]
  - PULMONARY GRANULOMA [None]
  - PYREXIA [None]
  - RASH [None]
  - RESTLESSNESS [None]
  - SCOLIOSIS [None]
  - SCRATCH [None]
  - SPINAL OSTEOARTHRITIS [None]
